FAERS Safety Report 4580369-8 (Version None)
Quarter: 2005Q1

REPORT INFORMATION
  Report Type: 
  Country: None (occurrence: None)
  Receive Date: 20050127
  Receipt Date: 20040830
  Transmission Date: 20050727
  Serious: No
  Sender: FDA-Public Use
  Company Number: USA040773223

PATIENT
  Age: 49 Year
  Sex: Female

DRUGS (21)
  1. STRATTERA [Suspect]
     Indication: ATTENTION DEFICIT/HYPERACTIVITY DISORDER
     Dosage: 40 MG/1 DAY
     Dates: start: 20040720
  2. PENTA-TRIAMTERENE HCTZ [Concomitant]
  3. XANAX (ALPRAZOLAM DUM) [Concomitant]
  4. K-DUR 10 [Concomitant]
  5. FEXOFENADINE HYDROCHLORIDE [Concomitant]
  6. BEXTRA [Concomitant]
  7. MAG (MAGNESIUM PIDOLATE) [Concomitant]
  8. OMEGA 3 (FISH OIL) [Concomitant]
  9. VITAMIN C [Concomitant]
  10. ASPIRIN [Concomitant]
  11. VITAMIN B6 [Concomitant]
  12. BENADRYL [Concomitant]
  13. CALCIUM GLUCONATE [Concomitant]
  14. SINGULAIR (MONTELUKAST) [Concomitant]
  15. ALBUTEROL [Concomitant]
  16. SOMA [Concomitant]
  17. DARVOCET-N 100 [Concomitant]
  18. MAXZIDE [Concomitant]
  19. VITAMINS [Concomitant]
  20. ALLEGRA-D [Concomitant]
  21. VITAMIN B COMPLEX CAP [Concomitant]

REACTIONS (4)
  - DECREASED APPETITE [None]
  - FATIGUE [None]
  - SOMNOLENCE [None]
  - WEIGHT INCREASED [None]
